FAERS Safety Report 5334511-1 (Version None)
Quarter: 2007Q2

REPORT INFORMATION
  Report Type: 
  Country: None (occurrence: None)
  Receive Date: 20070525
  Receipt Date: 20070518
  Transmission Date: 20071010
  Serious: Yes (Hospitalization)
  Sender: FDA-Public Use
  Company Number: US-ASTRAZENECA-2007UW12446

PATIENT
  Age: 72 Year
  Sex: Male

DRUGS (6)
  1. IRESSA [Suspect]
     Indication: BLADDER CANCER
     Route: 048
  2. DOCETAXEL [Suspect]
     Indication: BLADDER CANCER
     Route: 042
     Dates: start: 20070228, end: 20070502
  3. GLIPIZIDE [Concomitant]
     Route: 048
  4. MAGNESIUM OXIDE [Concomitant]
     Route: 048
  5. NEXIUM [Concomitant]
     Route: 048
  6. DEXAMETHASONE [Concomitant]
     Dates: end: 20070502

REACTIONS (6)
  - ACUTE RESPIRATORY FAILURE [None]
  - DIABETES MELLITUS [None]
  - DYSPNOEA [None]
  - LUNG INFILTRATION [None]
  - PYREXIA [None]
  - RENAL FAILURE [None]
